FAERS Safety Report 4803709-0 (Version None)
Quarter: 2005Q4

REPORT INFORMATION
  Report Type: 
  Country: None (occurrence: None)
  Receive Date: 20051019
  Receipt Date: 20051010
  Transmission Date: 20060501
  Serious: Yes (Life-Threatening, Hospitalization)
  Sender: FDA-Public Use
  Company Number: ES-MERCK-0510ESP00008

PATIENT
  Age: 88 Year
  Sex: Female

DRUGS (2)
  1. VIOXX [Suspect]
     Indication: OSTEOARTHRITIS
     Route: 048
     Dates: start: 20020101, end: 20040901
  2. TICLOPIDINE HYDROCHLORIDE [Suspect]
     Indication: CEREBROVASCULAR DISORDER
     Route: 048
     Dates: start: 19990101, end: 20040201

REACTIONS (1)
  - CEREBRAL ISCHAEMIA [None]
